FAERS Safety Report 5122632-8 (Version None)
Quarter: 2006Q4

REPORT INFORMATION
  Report Type: 
  Country: None (occurrence: None)
  Receive Date: 20061005
  Receipt Date: 20061005
  Transmission Date: 20070319
  Serious: Yes (Disabling)
  Sender: FDA-Public Use
  Company Number: None

PATIENT
  Sex: Female
  Weight: 75.7507 kg

DRUGS (1)
  1. XOLAIR [Suspect]
     Indication: ASTHMA
     Dosage: 150MG Q 4 WEEKS SQ
     Route: 058
     Dates: start: 20040216, end: 20060925

REACTIONS (2)
  - BOWEN'S DISEASE [None]
  - INJECTION SITE REACTION [None]
